FAERS Safety Report 6490933-7 (Version None)
Quarter: 2009Q4

REPORT INFORMATION
  Report Type: 
  Country: None (occurrence: None)
  Receive Date: 20091125
  Receipt Date: 20081002
  Transmission Date: 20100525
  Serious: Yes (Hospitalization)
  Sender: FDA-Public Use
  Company Number: 2008BH009807

PATIENT
  Sex: Female

DRUGS (4)
  1. DIANEAL [Suspect]
     Indication: PERITONEAL DIALYSIS
     Dosage: ; UNK ; IP
     Route: 033
     Dates: end: 20080901
  2. DIANEAL [Suspect]
     Indication: PERITONEAL DIALYSIS
     Dosage: ; UNK ; IP
     Route: 033
     Dates: start: 20080901
  3. DIANEAL [Suspect]
     Indication: PERITONEAL DIALYSIS
     Dosage: ; UNK ; IP
     Route: 033
     Dates: end: 20080901
  4. DIANEAL [Suspect]
     Indication: PERITONEAL DIALYSIS
     Dosage: ; UNK ; IP
     Route: 033
     Dates: start: 20080901

REACTIONS (1)
  - ABDOMINAL PAIN UPPER [None]
